FAERS Safety Report 17572370 (Version 1)
Quarter: 2020Q1

REPORT INFORMATION
  Report Type: Report from Study
  Country: CO (occurrence: CO)
  Receive Date: 20200323
  Receipt Date: 20200323
  Transmission Date: 20200409
  Serious: Yes (Other)
  Sender: FDA-Public Use
  Company Number: PHHY2017CO071668

PATIENT
  Age: 50 Year
  Sex: Female
  Weight: 43 kg

DRUGS (1)
  1. GILENYA [Suspect]
     Active Substance: FINGOLIMOD HYDROCHLORIDE
     Indication: MULTIPLE SCLEROSIS
     Dosage: 0.5 MG, QD
     Route: 048
     Dates: start: 20161003

REACTIONS (4)
  - Tumour marker increased [Not Recovered/Not Resolved]
  - Ovarian neoplasm [Not Recovered/Not Resolved]
  - Uterine neoplasm [Not Recovered/Not Resolved]
  - Magnetic resonance imaging abnormal [Not Recovered/Not Resolved]

NARRATIVE: CASE EVENT DATE: 20170421
